FAERS Safety Report 22124899 (Version 1)
Quarter: 2023Q1

REPORT INFORMATION
  Report Type: Spontaneous
  Country: US (occurrence: US)
  Receive Date: 20230322
  Receipt Date: 20230322
  Transmission Date: 20230417
  Serious: No
  Sender: FDA-Public Use
  Company Number: US-VERTEX PHARMACEUTICALS-2021-005598

PATIENT
  Sex: Female
  Weight: 70 kg

DRUGS (2)
  1. TRIKAFTA [Suspect]
     Active Substance: ELEXACAFTOR\IVACAFTOR\TEZACAFTOR
     Indication: Cystic fibrosis
     Dosage: 2 ORANGE TABS (100 MG ELEXA/ 50 MG TEZA/ 75 MG IVA) IN AM AND ONE BLUE TABLET (150 MG IVA) IN PM
     Route: 048
     Dates: start: 201911
  2. LINACLOTIDE [Concomitant]
     Active Substance: LINACLOTIDE
     Indication: Constipation
     Dosage: DAILY
     Dates: start: 20201215

REACTIONS (3)
  - Abnormal cord insertion [Unknown]
  - Abdominal hernia [Unknown]
  - Exposure during pregnancy [Unknown]
